FAERS Safety Report 6705673-6 (Version None)
Quarter: 2010Q2

REPORT INFORMATION
  Report Type: 
  Country: None (occurrence: None)
  Receive Date: 20100503
  Receipt Date: 20100420
  Transmission Date: 20101027
  Serious: No
  Sender: FDA-Public Use
  Company Number: US-B.I. PHARMACEUTICALS,INC./RIDGEFIELD-2010-BP-04667BP

PATIENT
  Sex: Female

DRUGS (11)
  1. SPIRIVA [Suspect]
     Indication: CHRONIC OBSTRUCTIVE PULMONARY DISEASE
     Route: 055
     Dates: end: 20100101
  2. SPIRIVA [Suspect]
     Dosage: 18 MCG
     Route: 055
     Dates: start: 20100101, end: 20100301
  3. SPIRIVA [Suspect]
     Dosage: 36 MCG
     Route: 055
     Dates: start: 20100301
  4. TRICOR [Concomitant]
     Indication: BLOOD CHOLESTEROL INCREASED
  5. LIPITOR [Concomitant]
     Indication: BLOOD CHOLESTEROL INCREASED
  6. NIASPAN [Concomitant]
     Indication: BLOOD CHOLESTEROL INCREASED
  7. XANAX [Concomitant]
     Indication: ANXIETY
  8. AMBIEN [Concomitant]
     Indication: ANXIETY
  9. TOPRAL [Concomitant]
     Indication: HYPERTENSION
  10. HYDROCODONE BITARTRATE [Concomitant]
     Indication: BACK PAIN
  11. HYDROCODONE BITARTRATE [Concomitant]
     Indication: ARTHRALGIA

REACTIONS (4)
  - DRUG INEFFECTIVE [None]
  - GLUCOSE TOLERANCE IMPAIRED [None]
  - POLLAKIURIA [None]
  - URINARY RETENTION [None]
